FAERS Safety Report 18177323 (Version 1)
Quarter: 2020Q3

REPORT INFORMATION
  Report Type: Spontaneous
  Country: DE (occurrence: DE)
  Receive Date: 20200821
  Receipt Date: 20200821
  Transmission Date: 20201103
  Serious: Yes (Hospitalization)
  Sender: FDA-Public Use
  Company Number: DE-TEVA-2020-DE-1815620

PATIENT
  Age: 79 Year
  Sex: Female
  Weight: 80.9 kg

DRUGS (7)
  1. ACETYLSALICYLSAURE [Concomitant]
     Active Substance: ASPIRIN
     Dosage: 100 MILLIGRAM DAILY;  1?0?0?0
     Route: 048
  2. INSULIN GLARGIN [Concomitant]
     Active Substance: INSULIN GLARGINE
     Dosage: 24 IU (INTERNATIONAL UNIT) DAILY; 0?0?0?1, AMPOULES
     Route: 058
  3. ROSUVASTATIN. [Concomitant]
     Active Substance: ROSUVASTATIN
     Dosage: 5 MILLIGRAM DAILY;  0?0?1?0
     Route: 048
  4. TORASEMID [Suspect]
     Active Substance: TORSEMIDE
     Dosage: 10 MILLIGRAM DAILY; 1?0?0?0
     Route: 048
  5. INSULIN GLULISIN [Concomitant]
     Active Substance: INSULIN GLULISINE
     Dosage: ACCORDING TO THE SCHEME
     Route: 058
  6. COLECALCIFEROL (VITAMIN D) [Concomitant]
     Dosage: 1000 IU (INTERNATIONAL UNIT) DAILY; 1?0?0?0
     Route: 048
  7. METAMIZOL [Concomitant]
     Active Substance: METAMIZOLE SODIUM
     Dosage: 500 MG, 4X,

REACTIONS (5)
  - Disorientation [Unknown]
  - Condition aggravated [Unknown]
  - General physical health deterioration [Unknown]
  - Confusional state [Unknown]
  - Restlessness [Unknown]
